FAERS Safety Report 9238904 (Version 1)
Quarter: 2013Q1

REPORT INFORMATION
  Report Type: Spontaneous
  Country: US (occurrence: None)
  Receive Date: 20121102
  Receipt Date: 20121102
  Transmission Date: 20140127
  Serious: Yes (Hospitalization)
  Sender: FDA-Public Use
  Company Number: 127677

PATIENT
  Age: 72 Year
  Sex: Male
  Weight: 51 kg

DRUGS (1)
  1. LEUCOVORIN CALCIUM [Suspect]
     Indication: OESOPHAGEAL CARCINOMA
     Dates: start: 20110831, end: 20111121

REACTIONS (2)
  - Dehydration [None]
  - Thrombocytopenia [None]
